FAERS Safety Report 15645326 (Version 7)
Quarter: 2020Q1

REPORT INFORMATION
  Report Type: Report from Study
  Country: US (occurrence: US)
  Receive Date: 20181121
  Receipt Date: 20200311
  Transmission Date: 20200409
  Serious: Yes (Other)
  Sender: FDA-Public Use
  Company Number: PHEH2018US048610

PATIENT
  Sex: Female
  Weight: 68.03 kg

DRUGS (2)
  1. COSENTYX [Suspect]
     Active Substance: SECUKINUMAB
     Indication: PSORIATIC ARTHROPATHY
     Dosage: 150 MG, QMO
     Route: 058
     Dates: start: 20180622
  2. COSENTYX [Suspect]
     Active Substance: SECUKINUMAB
     Indication: RHEUMATOID ARTHRITIS

REACTIONS (10)
  - Arthralgia [Unknown]
  - Back pain [Not Recovered/Not Resolved]
  - Osteomyelitis [Unknown]
  - Therapeutic product effect incomplete [Unknown]
  - Psoriatic arthropathy [Unknown]
  - Product dose omission [Unknown]
  - Infection [Unknown]
  - Product use in unapproved indication [Unknown]
  - Gingivitis [Unknown]
  - Joint swelling [Unknown]
